FAERS Safety Report 17134401 (Version 5)
Quarter: 2020Q2

REPORT INFORMATION
  Report Type: Spontaneous
  Country: PT (occurrence: PT)
  Receive Date: 20191210
  Receipt Date: 20200430
  Transmission Date: 20200713
  Serious: Yes (Life-Threatening, Hospitalization, Other)
  Sender: FDA-Public Use
  Company Number: PT-MYLANLABS-2019M1120053

PATIENT
  Age: 80 Year
  Sex: Male
  Weight: 60 kg

DRUGS (15)
  1. FENTANEST                          /00174601/ [Interacting]
     Active Substance: FENTANYL CITRATE
     Indication: GENERAL ANAESTHESIA
     Dosage: 150 MICROGRAM
  2. ROCURONIUM [Interacting]
     Active Substance: ROCURONIUM BROMIDE
     Indication: GENERAL ANAESTHESIA
     Dosage: 0.33 MG/KG
  3. PROPOFOL. [Interacting]
     Active Substance: PROPOFOL
     Indication: INDUCTION OF ANAESTHESIA
     Dosage: 15 MILLIGRAM
  4. FENTANYL. [Suspect]
     Active Substance: FENTANYL
     Indication: INDUCTION OF ANAESTHESIA
     Dosage: 150 MICROGRAM
  5. METAMIZOLE [Interacting]
     Active Substance: METAMIZOLE
     Indication: ANALGESIC THERAPY
     Dosage: 2000 MILLIGRAM
  6. PARECOXIB [Interacting]
     Active Substance: PARECOXIB
     Indication: ANALGESIC THERAPY
     Dosage: 40 MILLIGRAM
  7. MIDAZOLAM. [Interacting]
     Active Substance: MIDAZOLAM
     Indication: ANAESTHETIC PREMEDICATION
     Dosage: 3 MILLIGRAM, UNK
     Route: 065
     Dates: start: 20180614, end: 20180614
  8. SEVOFLURANE. [Interacting]
     Active Substance: SEVOFLURANE
     Indication: MAINTENANCE OF ANAESTHESIA
     Dosage: 1.0% - 1.2% IN A MIXTURE OF 45% O2 AND AIR
  9. SUGAMMADEX [Concomitant]
     Active Substance: SUGAMMADEX
     Indication: PRODUCT USED FOR UNKNOWN INDICATION
     Dosage: 200 MILLIGRAM
     Route: 065
  10. PROPOFOL. [Interacting]
     Active Substance: PROPOFOL
     Indication: GENERAL ANAESTHESIA
     Dosage: 150 MILLIGRAM
  11. ROCURONIUM [Interacting]
     Active Substance: ROCURONIUM BROMIDE
     Indication: INDUCTION OF ANAESTHESIA
     Dosage: 0.83 MG/KG
     Route: 042
  12. FENTANEST                          /00174601/ [Interacting]
     Active Substance: FENTANYL CITRATE
     Indication: INDUCTION OF ANAESTHESIA
     Dosage: 100 MICROGRAM
     Route: 065
  13. PROPOFOL. [Concomitant]
     Active Substance: PROPOFOL
     Indication: GENERAL ANAESTHESIA
     Dosage: 150 MILLIGRAM
     Route: 065
  14. PARACETAMOL [Interacting]
     Active Substance: ACETAMINOPHEN
     Indication: ANALGESIC THERAPY
     Dosage: 1000 MILLIGRAM, UNK
  15. REMIFENTANIL [Suspect]
     Active Substance: REMIFENTANIL
     Indication: MAINTENANCE OF ANAESTHESIA
     Dosage: 0.15 ?G/KG/MIN WITH MAINTENANCE OF BIS BETWEEN 38-46
     Route: 005

REACTIONS (4)
  - Hypertension [Unknown]
  - Respiratory acidosis [Unknown]
  - Neuromuscular block prolonged [Recovered/Resolved]
  - Drug interaction [Recovered/Resolved]
